FAERS Safety Report 7788198-9 (Version None)
Quarter: 2011Q3

REPORT INFORMATION
  Report Type: 
  Country: None (occurrence: None)
  Receive Date: 20110929
  Receipt Date: 20110929
  Transmission Date: 20111222
  Serious: Yes (Other)
  Sender: FDA-Public Use
  Company Number: None

PATIENT
  Age: 41 Year
  Sex: Female
  Weight: 83.9154 kg

DRUGS (2)
  1. LISTERINE WHITENING PRE-BRUSH RINSE VIBRANT WHITE (ORAL CARE PRODUCTS) [Suspect]
     Indication: TOOTH DISCOLOURATION
     Dosage: MOUTHFUL; 3 OR 4 TIMES ORAL IN THE MOUTH ORAL
     Route: 048
     Dates: start: 20110403, end: 20110407
  2. STOMATOLOGICALS, MOUTH PREPARATIONS (STOMATOLOGICALS, MOUTH PREPARATIO [Concomitant]

REACTIONS (9)
  - TOOTH DISORDER [None]
  - DEVICE BREAKAGE [None]
  - LIP PAIN [None]
  - GLOSSITIS [None]
  - DYSGEUSIA [None]
  - TONGUE INJURY [None]
  - LIP DISORDER [None]
  - PALATAL DISORDER [None]
  - ORAL DISORDER [None]
